FAERS Safety Report 7373668-8 (Version None)
Quarter: 2011Q1

REPORT INFORMATION
  Report Type: 
  Country: None (occurrence: None)
  Receive Date: 20110325
  Receipt Date: 20110304
  Transmission Date: 20110831
  Serious: Yes (Other)
  Sender: FDA-Public Use
  Company Number: US-BAYER-201034605NA

PATIENT
  Sex: Female
  Weight: 89 kg

DRUGS (3)
  1. YAZ [Suspect]
     Indication: ORAL CONTRACEPTION
     Route: 048
     Dates: start: 20050912, end: 20080915
  2. NEXIUM [Concomitant]
     Dosage: 40 MG, PRN
  3. YASMIN [Suspect]
     Indication: ORAL CONTRACEPTION
     Route: 048
     Dates: start: 20050912, end: 20080915

REACTIONS (4)
  - CHOLELITHIASIS [None]
  - GALLBLADDER DISORDER [None]
  - CHOLECYSTITIS [None]
  - INFLAMMATION [None]
